FAERS Safety Report 5128291-2 (Version None)
Quarter: 2006Q4

REPORT INFORMATION
  Report Type: 
  Country: None (occurrence: None)
  Receive Date: 20061017
  Receipt Date: 20060825
  Transmission Date: 20070319
  Serious: Yes (Hospitalization, Disabling)
  Sender: FDA-Public Use
  Company Number: US-BRISTOL-MYERS SQUIBB COMPANY-13489182

PATIENT
  Age: 53 Year
  Sex: Male

DRUGS (3)
  1. ERBITUX [Suspect]
     Indication: TONGUE NEOPLASM MALIGNANT STAGE UNSPECIFIED
     Dosage: THE PATIENT RECEIVED CETUXIMAB ON 5/11/06, 5/18/06,5/26/06
     Route: 042
     Dates: start: 20060525, end: 20060525
  2. ERBITUX [Suspect]
     Indication: LARYNGEAL CANCER
     Dosage: THE PATIENT RECEIVED CETUXIMAB ON 5/11/06, 5/18/06,5/26/06
     Route: 042
     Dates: start: 20060525, end: 20060525
  3. CISPLATIN [Concomitant]
     Dates: start: 20060511, end: 20060511

REACTIONS (1)
  - THROMBOEMBOLIC STROKE [None]
